FAERS Safety Report 9547588 (Version 1)
Quarter: 2013Q3

REPORT INFORMATION
  Report Type: Spontaneous
  Country: US (occurrence: None)
  Receive Date: 20130702
  Receipt Date: 20130702
  Transmission Date: 20140515
  Serious: No
  Sender: FDA-Public Use
  Company Number: 411753

PATIENT
  Age: 85 Year
  Sex: Female
  Weight: 49 kg

DRUGS (1)
  1. PACLITAXEL [Suspect]
     Indication: PRODUCT USED FOR UNKNOWN INDICATION
     Dates: start: 20091014, end: 20091014

REACTIONS (2)
  - Flushing [None]
  - Feeling hot [None]
